FAERS Safety Report 23742352 (Version 1)
Quarter: 2024Q2

REPORT INFORMATION
  Report Type: Spontaneous
  Country: US (occurrence: None)
  Receive Date: 20240413
  Receipt Date: 20240413
  Transmission Date: 20240716
  Serious: No
  Sender: FDA-Public Use
  Company Number: None

PATIENT
  Age: 54 Year
  Sex: Male

DRUGS (1)
  1. MESNEX [Suspect]
     Active Substance: MESNA
     Indication: Paranasal sinus and nasal cavity malignant neoplasm
     Dosage: FREQUENCY : DAILY;?
     Route: 048

REACTIONS (7)
  - Vomiting [None]
  - Diarrhoea [None]
  - Blood glucose decreased [None]
  - Diabetic ketoacidosis [None]
  - Blood potassium decreased [None]
  - White blood cell count decreased [None]
  - Dehydration [None]

NARRATIVE: CASE EVENT DATE: 20240320
